FAERS Safety Report 17227372 (Version 4)
Quarter: 2020Q2

REPORT INFORMATION
  Report Type: Spontaneous
  Country: US (occurrence: US)
  Receive Date: 20200103
  Receipt Date: 20200611
  Transmission Date: 20200713
  Serious: No
  Sender: FDA-Public Use
  Company Number: US-BIOGEN-2019BI00818676

PATIENT
  Sex: Female

DRUGS (1)
  1. TYSABRI [Suspect]
     Active Substance: NATALIZUMAB
     Indication: MULTIPLE SCLEROSIS
     Route: 042
     Dates: start: 20190327, end: 20190814

REACTIONS (9)
  - Dysgraphia [Unknown]
  - Gastrooesophageal reflux disease [Not Recovered/Not Resolved]
  - Multiple sclerosis [Unknown]
  - Dysphagia [Not Recovered/Not Resolved]
  - Weight increased [Not Recovered/Not Resolved]
  - Lung disorder [Not Recovered/Not Resolved]
  - Insomnia [Not Recovered/Not Resolved]
  - Hiatus hernia [Unknown]
  - Abdominal pain upper [Not Recovered/Not Resolved]
